FAERS Safety Report 16893209 (Version 1)
Quarter: 2019Q4

REPORT INFORMATION
  Report Type: Spontaneous
  Country: IT (occurrence: IT)
  Receive Date: 20191008
  Receipt Date: 20191008
  Transmission Date: 20200122
  Serious: Yes (Hospitalization)
  Sender: FDA-Public Use
  Company Number: IT-TEVA-2019-IT-1117615

PATIENT
  Age: 78 Year
  Sex: Male

DRUGS (6)
  1. JANUMET [Concomitant]
     Active Substance: METFORMIN HYDROCHLORIDE\SITAGLIPTIN PHOSPHATE
     Dosage: 2 DOSAGE FORMS
     Route: 048
  2. PACLITAXEL TEVA [Suspect]
     Active Substance: PACLITAXEL
     Indication: PLEURAL MESOTHELIOMA
     Dosage: 140 MILLIGRAM, 1 CYCLICAL
     Route: 042
     Dates: start: 20190918, end: 20190918
  3. KANRENOL 100 COMPRESSE [Concomitant]
     Active Substance: CANRENOATE POTASSIUM
     Dosage: 1 DOSAGE FORM
     Route: 048
  4. OMEPRAZOLE. [Concomitant]
     Active Substance: OMEPRAZOLE
     Dosage: 40 MILLIGRAM
     Route: 048
  5. EN [Concomitant]
     Active Substance: DELORAZEPAM
     Dosage: 7 GTT
  6. GLIMEPIRIDE. [Concomitant]
     Active Substance: GLIMEPIRIDE
     Dosage: 2 MILLIGRAM
     Route: 048

REACTIONS (3)
  - Choking sensation [Recovering/Resolving]
  - Bronchospasm [Recovering/Resolving]
  - Oxygen saturation decreased [Recovering/Resolving]

NARRATIVE: CASE EVENT DATE: 20190918
